FAERS Safety Report 9306910 (Version 1)
Quarter: 2013Q1

REPORT INFORMATION
  Report Type: Spontaneous
  Country: US (occurrence: None)
  Receive Date: 20130314
  Receipt Date: 20130314
  Transmission Date: 20140127
  Serious: No
  Sender: FDA-Public Use
  Company Number: 7196682

PATIENT
  Sex: Male

DRUGS (1)
  1. LEVOTHYROXINE [Suspect]
     Indication: HYPOTHYROIDISM
     Route: 064

REACTIONS (23)
  - Maternal drugs affecting foetus [None]
  - Thrombocytopenia-absent radius syndrome [None]
  - Low set ears [None]
  - Hypertelorism of orbit [None]
  - Brachycephaly [None]
  - Body height below normal [None]
  - Congenital lymphoedema [None]
  - Petechiae [None]
  - Purpura [None]
  - Caesarean section [None]
  - Limb reduction defect [None]
  - Foetal growth restriction [None]
  - Cardiac murmur [None]
  - Catheter site haemorrhage [None]
  - Atrial septal defect [None]
  - Atrial septal defect [None]
  - Patent ductus arteriosus [None]
  - Ventricular septal defect [None]
  - Ventricular hypertrophy [None]
  - Tricuspid valve incompetence [None]
  - Pulmonary artery stenosis congenital [None]
  - Congenital anomaly [None]
  - Thrombocytopenia neonatal [None]
